FAERS Safety Report 4775156-1 (Version None)
Quarter: 2005Q3

REPORT INFORMATION
  Report Type: 
  Country: None (occurrence: None)
  Receive Date: 20050920
  Receipt Date: 20050906
  Transmission Date: 20060218
  Serious: Yes (Other)
  Sender: FDA-Public Use
  Company Number: 2005093152

PATIENT
  Age: 66 Year
  Sex: Male
  Weight: 84.8226 kg

DRUGS (6)
  1. LIPITOR [Suspect]
     Indication: BLOOD CHOLESTEROL INCREASED
     Dosage: 30 MG (10 MG, 3 IN 1 D), ORAL
     Route: 048
     Dates: start: 20010901
  2. LIPITOR [Suspect]
     Indication: BLOOD TRIGLYCERIDES INCREASED
     Dosage: 30 MG (10 MG, 3 IN 1 D), ORAL
     Route: 048
     Dates: start: 20010901
  3. NORVASC [Concomitant]
  4. COLESTID [Concomitant]
  5. TONOCARD (TOCAINIDE HYDROCHLORIDE) [Concomitant]
  6. MEXILETENE (MEXILETINE) [Concomitant]

REACTIONS (7)
  - ANEURYSM [None]
  - AORTIC VALVE DISEASE [None]
  - ARRHYTHMIA [None]
  - BLOOD TRIGLYCERIDES INCREASED [None]
  - CORONARY ARTERY OCCLUSION [None]
  - DRUG INEFFECTIVE [None]
  - OBSTRUCTION [None]
